FAERS Safety Report 12227957 (Version 2)
Quarter: 2016Q2

REPORT INFORMATION
  Report Type: Spontaneous
  Country: US (occurrence: US)
  Receive Date: 20160401
  Receipt Date: 20160520
  Transmission Date: 20160815
  Serious: Yes (Hospitalization, Other)
  Sender: FDA-Public Use
  Company Number: US-ASTRAZENECA-2016SE32984

PATIENT
  Age: 86 Year
  Sex: Female
  Weight: 65.8 kg

DRUGS (3)
  1. SYMBICORT [Suspect]
     Active Substance: BUDESONIDE\FORMOTEROL FUMARATE DIHYDRATE
     Indication: ASTHMA
     Dosage: 80 4.5, 2 PUFFS TWO TIMES A DAY
     Route: 055
  2. VITAMINS NOS [Concomitant]
     Active Substance: VITAMINS
  3. SYMBICORT [Suspect]
     Active Substance: BUDESONIDE\FORMOTEROL FUMARATE DIHYDRATE
     Indication: ASTHMA
     Dosage: 80 4.5, 2 PUFFS TWO TIMES A DAY
     Route: 055
     Dates: start: 201603

REACTIONS (5)
  - Myocardial infarction [Recovered/Resolved]
  - Product quality issue [Unknown]
  - Fall [Unknown]
  - Ankle fracture [Unknown]
  - Drug dose omission [Unknown]

NARRATIVE: CASE EVENT DATE: 2012
